FAERS Safety Report 5613643-4 (Version None)
Quarter: 2008Q1

REPORT INFORMATION
  Report Type: 
  Country: None (occurrence: None)
  Receive Date: 20080205
  Receipt Date: 20080122
  Transmission Date: 20080703
  Serious: Yes (Death, Life-Threatening)
  Sender: FDA-Public Use
  Company Number: FR-JNJFOC-20080105265

PATIENT
  Sex: Male

DRUGS (7)
  1. PREZISTA [Suspect]
     Indication: HIV INFECTION
     Route: 048
  2. TRUVADA [Suspect]
     Indication: HIV INFECTION
     Route: 065
  3. ISENTRESS [Suspect]
     Indication: HIV INFECTION
     Route: 048
  4. NORVIR [Concomitant]
     Indication: HIV INFECTION
     Route: 065
  5. VALACYCLOVIR [Concomitant]
     Route: 065
  6. PROZAC [Concomitant]
     Route: 065
  7. FUNGIZONE [Concomitant]
     Route: 065

REACTIONS (2)
  - HEPATIC NEOPLASM MALIGNANT [None]
  - LYMPHOMA [None]
